FAERS Safety Report 15036377 (Version 1)
Quarter: 2018Q2

REPORT INFORMATION
  Report Type: Other
  Country: CA (occurrence: CA)
  Receive Date: 20180620
  Receipt Date: 20180620
  Transmission Date: 20180711
  Serious: Yes (Hospitalization, Other)
  Sender: FDA-Public Use
  Company Number: CA-APOTEX-2018AP015677

PATIENT
  Age: 29 Year
  Sex: Female
  Weight: 48 kg

DRUGS (1)
  1. LEVETIRACETAM. [Suspect]
     Active Substance: LEVETIRACETAM
     Indication: EPILEPSY
     Dosage: 500 MG, BID
     Route: 048

REACTIONS (11)
  - Oropharyngeal pain [Unknown]
  - Seizure [Unknown]
  - Influenza [Unknown]
  - Rash [Unknown]
  - Drug hypersensitivity [Unknown]
  - Pyrexia [Unknown]
  - Chills [Unknown]
  - Stomatitis [Unknown]
  - Gait disturbance [Unknown]
  - Pain [Unknown]
  - Hallucination [Unknown]
